FAERS Safety Report 5142949-0 (Version None)
Quarter: 2006Q4

REPORT INFORMATION
  Report Type: 
  Country: None (occurrence: None)
  Receive Date: 20061027
  Receipt Date: 20061020
  Transmission Date: 20070319
  Serious: Yes (Life-Threatening)
  Sender: FDA-Public Use
  Company Number: HQWYE478224OCT06

PATIENT
  Age: 62 Year
  Sex: Male

DRUGS (7)
  1. MYLOTARG [Suspect]
     Indication: ACUTE MYELOID LEUKAEMIA
     Dosage: 18 MG/M^2 1X PER DAY
     Route: 041
     Dates: start: 20060920, end: 20060920
  2. ETODOLAC [Concomitant]
  3. FAMOTIDINE [Concomitant]
  4. PRORENAL (LIMAPROST) [Concomitant]
  5. BAKTAR (SULFAMTHOXAZOLE/TRIMETHOPRIM) [Concomitant]
  6. MUCOSTA (REBAMIPIDE) [Concomitant]
  7. ZOLPIDEM TARTRATE [Concomitant]

REACTIONS (11)
  - BLAST CELL COUNT INCREASED [None]
  - BLOOD CREATINE PHOSPHOKINASE INCREASED [None]
  - BLOOD FIBRINOGEN INCREASED [None]
  - DIASTOLIC HYPERTENSION [None]
  - FIBRIN DEGRADATION PRODUCTS INCREASED [None]
  - NAUSEA [None]
  - NEUTROPHIL COUNT DECREASED [None]
  - PERFORMANCE STATUS DECREASED [None]
  - PLATELET COUNT DECREASED [None]
  - PNEUMONIA [None]
  - WHITE BLOOD CELL COUNT INCREASED [None]
